FAERS Safety Report 24766525 (Version 1)
Quarter: 2024Q4

REPORT INFORMATION
  Report Type: Spontaneous
  Country: JP (occurrence: JP)
  Receive Date: 20241223
  Receipt Date: 20241223
  Transmission Date: 20250115
  Serious: Yes (Other)
  Sender: AMGEN
  Company Number: JP-AMGEN-JPNSP2024247164

PATIENT

DRUGS (2)
  1. OTEZLA [Suspect]
     Active Substance: APREMILAST
     Indication: Product used for unknown indication
     Dosage: UNK
     Route: 048
  2. OTEZLA [Suspect]
     Active Substance: APREMILAST
     Dosage: SPLITTING 30 MG TABLETS INTO TWO PROBABLY
     Route: 048

REACTIONS (3)
  - Renal impairment [Unknown]
  - Unevaluable event [Unknown]
  - Wrong technique in product usage process [Unknown]
